FAERS Safety Report 8209484-4 (Version None)
Quarter: 2012Q1

REPORT INFORMATION
  Report Type: 
  Country: None (occurrence: None)
  Receive Date: 20120314
  Receipt Date: 20120312
  Transmission Date: 20120608
  Serious: No
  Sender: FDA-Public Use
  Company Number: US-PFIZER INC-2011186878

PATIENT
  Sex: Female

DRUGS (3)
  1. PENICILLIN G BENZATHINE AND PENICILLIN G PROCAINE [Suspect]
     Dosage: UNK
  2. SIMVASTATIN [Concomitant]
     Indication: HYPERLIPIDAEMIA
     Dosage: 20 MG, 1X/DAY
  3. TAPAZOLE [Suspect]
     Indication: HYPERTHYROIDISM
     Dosage: 5 MG, 1X/DAY
     Route: 048
     Dates: start: 20090201

REACTIONS (3)
  - DRUG HYPERSENSITIVITY [None]
  - RASH [None]
  - SKIN HYPERPIGMENTATION [None]
